FAERS Safety Report 23445196 (Version 2)
Quarter: 2024Q1

REPORT INFORMATION
  Report Type: Report from Study
  Country: US (occurrence: US)
  Receive Date: 20240125
  Receipt Date: 20240203
  Transmission Date: 20240410
  Serious: Yes (Hospitalization)
  Sender: FDA-Public Use
  Company Number: US-ABBVIE-5599963

PATIENT
  Sex: Male
  Weight: 73 kg

DRUGS (11)
  1. HUMIRA [Suspect]
     Active Substance: ADALIMUMAB
     Indication: Rheumatoid arthritis
     Dosage: FORM STRENGTH 40 MILLIGRAM?THERAPY STOP DATE 2023
     Route: 058
     Dates: start: 20230501
  2. HUMIRA [Suspect]
     Active Substance: ADALIMUMAB
     Dosage: THERAPY STOP DATE DEC 2023?FORM STRENGTH 40 MILLIGRAM
     Route: 058
     Dates: start: 20231216
  3. HUMIRA [Suspect]
     Active Substance: ADALIMUMAB
     Dosage: FORM STRENGTH 40 MILLIGRAM?THERAPY STOP DATE NOV 2023
     Route: 058
     Dates: start: 20231104
  4. HUMIRA [Suspect]
     Active Substance: ADALIMUMAB
     Dosage: FORM STRENGTH 40 MILLIGRAM?THERAPY STOP DATE OCT 2023
     Route: 058
     Dates: start: 20231007
  5. HUMIRA [Suspect]
     Active Substance: ADALIMUMAB
     Route: 058
     Dates: start: 20231230
  6. HUMIRA [Suspect]
     Active Substance: ADALIMUMAB
     Dosage: THERAPY STOP DATE 2023?FORM STRENGTH 40 MILLIGRAM
     Route: 058
     Dates: start: 20231118
  7. HUMIRA [Suspect]
     Active Substance: ADALIMUMAB
     Dosage: FORM STRENGTH 40 MILLIGRAM?THERAPY STOP DATE 2023
     Route: 058
     Dates: start: 20231021
  8. HUMIRA [Suspect]
     Active Substance: ADALIMUMAB
     Dosage: FORM STRENGTH 40 MILLIGRAM?THERAPY STOP DATE 2023
     Route: 058
     Dates: start: 20230826
  9. HUMIRA [Suspect]
     Active Substance: ADALIMUMAB
     Dosage: FORM STRENGTH 40 MILLIGRAM?THERAPY STOP DATE SEP 2023
     Route: 058
     Dates: start: 20230909
  10. HUMIRA [Suspect]
     Active Substance: ADALIMUMAB
     Dosage: FORM STRENGTH 40 MILLIGRAM?THERAPY STOP DATE 2023
     Route: 058
     Dates: start: 20230923
  11. HUMIRA [Suspect]
     Active Substance: ADALIMUMAB
     Dosage: THERAPY STOP DATE DEC 2023?FORM STRENGTH 40 MILLIGRAM
     Route: 058
     Dates: start: 20231202

REACTIONS (1)
  - Mental disorder [Unknown]
